FAERS Safety Report 15181447 (Version 6)
Quarter: 2019Q3

REPORT INFORMATION
  Report Type: Spontaneous
  Country: US (occurrence: US)
  Receive Date: 20180723
  Receipt Date: 20190724
  Transmission Date: 20191004
  Serious: Yes (Other)
  Sender: FDA-Public Use
  Company Number: US-SA-2018SA196674

PATIENT
  Age: 72 Year
  Sex: Female

DRUGS (2)
  1. AUBAGIO [Suspect]
     Active Substance: TERIFLUNOMIDE
     Dosage: 14 MG, QD
     Route: 048
     Dates: start: 20170411
  2. AUBAGIO [Suspect]
     Active Substance: TERIFLUNOMIDE
     Indication: MULTIPLE SCLEROSIS
     Dosage: 14 MG, QD
     Route: 048
     Dates: start: 20150205

REACTIONS (11)
  - Pain in extremity [Unknown]
  - Multiple sclerosis relapse [Unknown]
  - Arthralgia [Unknown]
  - Tendon rupture [Unknown]
  - Rotator cuff syndrome [Unknown]
  - Urinary tract infection [Not Recovered/Not Resolved]
  - Cystitis [Unknown]
  - Pain in extremity [Unknown]
  - Hypoaesthesia [Unknown]
  - Neuropathy peripheral [Not Recovered/Not Resolved]
  - Alopecia [Unknown]

NARRATIVE: CASE EVENT DATE: 2018
